FAERS Safety Report 5952288-3 (Version None)
Quarter: 2008Q4

REPORT INFORMATION
  Report Type: 
  Country: None (occurrence: None)
  Receive Date: 20081113
  Receipt Date: 20081107
  Transmission Date: 20090506
  Serious: Yes (Hospitalization, Other)
  Sender: FDA-Public Use
  Company Number: US-ASTRAZENECA-2008UW12611

PATIENT
  Age: 38 Year
  Sex: Male
  Weight: 78.9 kg

DRUGS (7)
  1. SEROQUEL [Suspect]
     Dosage: AS REQUIRED
     Route: 048
  2. CHANTIX [Suspect]
     Indication: SMOKING CESSATION THERAPY
     Dates: start: 20071223, end: 20071225
  3. XANAX [Suspect]
  4. DEPAKOTE [Suspect]
  5. ZYPREXA [Suspect]
  6. ALCOHOL [Suspect]
  7. PROTONIX [Concomitant]

REACTIONS (2)
  - ALCOHOL WITHDRAWAL SYNDROME [None]
  - MENTAL STATUS CHANGES [None]
